FAERS Safety Report 9372138 (Version 2)
Quarter: 2014Q2

REPORT INFORMATION
  Report Type: Report from Study
  Country: US (occurrence: US)
  Receive Date: 20130627
  Receipt Date: 20140626
  Transmission Date: 20141212
  Serious: Yes (Other)
  Sender: FDA-Public Use
  Company Number: US-MYLANLABS-2012S1015556

PATIENT
  Age: 65 Year
  Sex: Female
  Weight: 63.5 kg

DRUGS (4)
  1. CLOZAPINE TABLETS [Suspect]
     Indication: BIPOLAR I DISORDER
     Dates: start: 201110, end: 20130121
  2. CLOZAPINE TABLETS [Suspect]
     Indication: BIPOLAR I DISORDER
  3. DEPAKOTE [Suspect]
     Indication: BIPOLAR I DISORDER
  4. DEPAKOTE [Suspect]
     Indication: BIPOLAR I DISORDER

REACTIONS (2)
  - Granulocytopenia [Not Recovered/Not Resolved]
  - Leukopenia [Recovered/Resolved]
